FAERS Safety Report 13152136 (Version 1)
Quarter: 2017Q1

REPORT INFORMATION
  Report Type: Spontaneous
  Country: NP (occurrence: NP)
  Receive Date: 20170125
  Receipt Date: 20170125
  Transmission Date: 20170428
  Serious: Yes (Death)
  Sender: FDA-Public Use
  Company Number: NP-PFIZER INC-2017032120

PATIENT
  Age: 23 Year
  Sex: Male

DRUGS (2)
  1. MAGNEX FORTE [Suspect]
     Active Substance: CEFOPERAZONE SODIUM\SULBACTAM SODIUM
     Indication: SEPSIS
     Dosage: UNK
  2. DALACIN [Suspect]
     Active Substance: CLINDAMYCIN
     Indication: SEPSIS
     Dosage: UNK

REACTIONS (3)
  - Aspiration [None]
  - Lung infection [Fatal]
  - Choking [None]
